FAERS Safety Report 4629176-8 (Version None)
Quarter: 2005Q2

REPORT INFORMATION
  Report Type: 
  Country: None (occurrence: None)
  Receive Date: 20050404
  Receipt Date: 20050404
  Transmission Date: 20051028
  Serious: Yes (Other)
  Sender: FDA-Public Use
  Company Number: None

PATIENT
  Age: 63 Year
  Sex: Female
  Weight: 76.6579 kg

DRUGS (4)
  1. REMICADE [Suspect]
     Indication: RHEUMATOID ARTHRITIS
     Dosage: INFUSION EVERY 8 WKS
     Dates: start: 20040916
  2. REMICADE [Suspect]
     Indication: RHEUMATOID ARTHRITIS
     Dosage: INFUSION EVERY 8 WKS
     Dates: start: 20040930
  3. REMICADE [Suspect]
     Indication: RHEUMATOID ARTHRITIS
     Dosage: INFUSION EVERY 8 WKS
     Dates: start: 20041028
  4. REMICADE [Suspect]
     Indication: RHEUMATOID ARTHRITIS
     Dosage: INFUSION EVERY 8 WKS
     Dates: start: 20041223

REACTIONS (1)
  - NEUTROPENIA [None]
